FAERS Safety Report 4586581-6 (Version None)
Quarter: 2005Q1

REPORT INFORMATION
  Report Type: 
  Country: None (occurrence: None)
  Receive Date: 20050218
  Receipt Date: 20040504
  Transmission Date: 20050727
  Serious: Yes (Hospitalization)
  Sender: FDA-Public Use
  Company Number: US-BRISTOL-MYERS SQUIBB COMPANY-12578712

PATIENT
  Age: 64 Year
  Sex: Female
  Weight: 75 kg

DRUGS (8)
  1. PACLITAXEL [Suspect]
     Indication: ENDOMETRIAL CANCER
     Dosage: OR LOT #: 3M61661 / NDC 0172-3753-96 / EXP. DATE 31-DEC-06
     Route: 042
     Dates: start: 20040503, end: 20040503
  2. BENADRYL [Concomitant]
     Indication: PREMEDICATION
     Route: 042
     Dates: start: 20040503, end: 20040503
  3. KYTRIL [Concomitant]
     Indication: PREMEDICATION
     Route: 042
     Dates: start: 20040503, end: 20040503
  4. PEPCID [Concomitant]
     Indication: PREMEDICATION
     Route: 042
     Dates: start: 20040503, end: 20040503
  5. DECADRON [Concomitant]
     Indication: PREMEDICATION
     Route: 042
     Dates: start: 20040503, end: 20040503
  6. MULTI-VITAMINS [Concomitant]
  7. IMODIUM [Concomitant]
  8. COMPAZINE [Concomitant]

REACTIONS (1)
  - HYPERSENSITIVITY [None]
